FAERS Safety Report 15806961 (Version 3)
Quarter: 2019Q1

REPORT INFORMATION
  Report Type: Spontaneous
  Country: US (occurrence: US)
  Receive Date: 20190110
  Receipt Date: 20190205
  Transmission Date: 20190417
  Serious: Yes (Other)
  Sender: FDA-Public Use
  Company Number: US-SA-2019SA006298

PATIENT
  Age: 48 Year
  Sex: Female

DRUGS (1)
  1. LEMTRADA [Suspect]
     Active Substance: ALEMTUZUMAB
     Dosage: UNK, UNK
     Route: 041
     Dates: start: 20160425, end: 20160427

REACTIONS (9)
  - Speech disorder [Unknown]
  - Deep vein thrombosis [Unknown]
  - Dizziness [Unknown]
  - Anticoagulation drug level below therapeutic [Unknown]
  - Muscular weakness [Unknown]
  - Carotid artery dissection [Unknown]
  - Neck pain [Unknown]
  - Cerebrovascular accident [Unknown]
  - Cerebral infarction [Unknown]

NARRATIVE: CASE EVENT DATE: 201605
